FAERS Safety Report 16824359 (Version 2)
Quarter: 2019Q4

REPORT INFORMATION
  Report Type: Spontaneous
  Country: DE (occurrence: DE)
  Receive Date: 20190918
  Receipt Date: 20191003
  Transmission Date: 20200122
  Serious: Yes (Other)
  Sender: FDA-Public Use
  Company Number: DE-GILEAD-2019-0429019

PATIENT

DRUGS (2)
  1. TRUVADA [Suspect]
     Active Substance: EMTRICITABINE\TENOFOVIR DISOPROXIL FUMARATE
     Indication: HIV INFECTION CDC CATEGORY C
     Dosage: UNK
     Route: 065
     Dates: start: 201507
  2. DOLUTEGRAVIR [Suspect]
     Active Substance: DOLUTEGRAVIR
     Indication: HIV INFECTION CDC CATEGORY C
     Route: 065

REACTIONS (1)
  - Pneumocystis jirovecii pneumonia [Unknown]

NARRATIVE: CASE EVENT DATE: 20150722
